FAERS Safety Report 8190128-5 (Version None)
Quarter: 2012Q1

REPORT INFORMATION
  Report Type: 
  Country: None (occurrence: None)
  Receive Date: 20120305
  Receipt Date: 20120223
  Transmission Date: 20120608
  Serious: Yes (Other)
  Sender: FDA-Public Use
  Company Number: 2012SP010523

PATIENT
  Age: 15 Year
  Sex: Female
  Weight: 50.8029 kg

DRUGS (2)
  1. IMPLANON [Suspect]
     Indication: CONTRACEPTION
     Dates: start: 20090501, end: 20090601
  2. IMPLANON [Suspect]
     Indication: CONTRACEPTION
     Dates: start: 20091101

REACTIONS (4)
  - MATERNAL EXPOSURE BEFORE PREGNANCY [None]
  - PREGNANCY WITH IMPLANT CONTRACEPTIVE [None]
  - UMBILICAL CORD ABNORMALITY [None]
  - DEVICE DIFFICULT TO USE [None]
